FAERS Safety Report 21177035 (Version 1)
Quarter: 2022Q3

REPORT INFORMATION
  Report Type: Spontaneous
  Country: US (occurrence: US)
  Receive Date: 20220805
  Receipt Date: 20220805
  Transmission Date: 20221027
  Serious: No
  Sender: FDA-Public Use
  Company Number: US-PFIZER INC-202201033539

PATIENT
  Age: 66 Year
  Sex: Female
  Weight: 61.23 kg

DRUGS (2)
  1. PAXLOVID [Suspect]
     Active Substance: NIRMATRELVIR\RITONAVIR
     Indication: COVID-19 treatment
     Dosage: [PF-07321332 300 MG]/[RITONAVIR 100 MG]; 2X/DAY
     Route: 048
  2. TALTZ [Suspect]
     Active Substance: IXEKIZUMAB
     Indication: Psoriasis
     Dosage: ONCE EVERY TWO WEEKS

REACTIONS (10)
  - Pyrexia [Unknown]
  - Asthenia [Unknown]
  - Vision blurred [Unknown]
  - Joint instability [Unknown]
  - Dizziness [Unknown]
  - Mobility decreased [Unknown]
  - Rash erythematous [Unknown]
  - Pruritus [Unknown]
  - Joint swelling [Unknown]
  - Cough [Unknown]
